FAERS Safety Report 7393505-5 (Version None)
Quarter: 2011Q2

REPORT INFORMATION
  Report Type: 
  Country: None (occurrence: None)
  Receive Date: 20110405
  Receipt Date: 20110328
  Transmission Date: 20111010
  Serious: Yes (Hospitalization)
  Sender: FDA-Public Use
  Company Number: US-US-EMD SERONO, INC.-7050747

PATIENT
  Sex: Female

DRUGS (1)
  1. REBIF [Suspect]
     Indication: PROGRESSIVE MULTIPLE SCLEROSIS
     Dates: start: 20100513, end: 20110301

REACTIONS (3)
  - INFECTION [None]
  - MULTIPLE SCLEROSIS [None]
  - HYSTERECTOMY [None]
